FAERS Safety Report 6274472-4 (Version None)
Quarter: 2009Q3

REPORT INFORMATION
  Report Type: 
  Country: None (occurrence: None)
  Receive Date: 20090720
  Receipt Date: 20090715
  Transmission Date: 20100115
  Serious: Yes (Life-Threatening, Hospitalization, Disabling, Other)
  Sender: FDA-Public Use
  Company Number: PHHY2009CA28476

PATIENT
  Age: 40 Year
  Sex: Female

DRUGS (8)
  1. GLEEVEC [Suspect]
     Indication: GASTROINTESTINAL STROMAL TUMOUR
     Dosage: 400 MG DAILY
     Route: 048
     Dates: start: 20080901
  2. GLEEVEC [Suspect]
     Dosage: UNK
     Dates: end: 20090618
  3. PERCOCET [Suspect]
     Dosage: 3-4 DAILY
  4. OXYCODONE [Suspect]
     Dosage: 3-4 TABS PER DAY
  5. TYLENOL (CAPLET) [Suspect]
     Dosage: 3-4 TABS PER DAY
  6. PANTOPRAZOLE SODIUM [Concomitant]
     Indication: GASTROOESOPHAGEAL REFLUX DISEASE
     Dosage: 40 MG DAILY
     Route: 048
  7. ONDASETRON [Concomitant]
     Indication: NAUSEA
     Dosage: 8 MG DAILY
     Route: 048
  8. STEMETIL [Concomitant]
     Indication: NAUSEA
     Dosage: 10 MG DAILY
     Route: 048

REACTIONS (13)
  - ABDOMINAL PAIN [None]
  - ASTERIXIS [None]
  - DECREASED APPETITE [None]
  - ENCEPHALOPATHY [None]
  - FATIGUE [None]
  - HEPATIC FAILURE [None]
  - HEPATIC NECROSIS [None]
  - HEPATITIS [None]
  - JAUNDICE [None]
  - MENTAL STATUS CHANGES [None]
  - NAUSEA [None]
  - TRANSAMINASES INCREASED [None]
  - TUMOUR EXCISION [None]
